FAERS Safety Report 18402660 (Version 8)
Quarter: 2021Q2

REPORT INFORMATION
  Report Type: Spontaneous
  Country: FR (occurrence: FR)
  Receive Date: 20201019
  Receipt Date: 20210524
  Transmission Date: 20210717
  Serious: Yes (Other)
  Sender: FDA-Public Use
  Company Number: PT-SUNOVION-2020SUN003075

PATIENT

DRUGS (14)
  1. HALDOL [Suspect]
     Active Substance: HALOPERIDOL
     Indication: SCHIZOPHRENIA
     Dosage: 5 MILLIGRAM, 3X / DAY
     Route: 048
     Dates: start: 2018, end: 20210121
  2. EVEROLIMUS. [Suspect]
     Active Substance: EVEROLIMUS
     Dosage: UNK
     Route: 048
  3. VOTUBIA [Suspect]
     Active Substance: EVEROLIMUS
     Indication: PRODUCT USED FOR UNKNOWN INDICATION
     Dosage: UNK
     Route: 065
  4. LEXOMIL [Suspect]
     Active Substance: BROMAZEPAM
     Indication: HALLUCINATION
     Dosage: HALF TABLET
  5. PAROXETINE ARROW [Suspect]
     Active Substance: PAROXETINE
     Dosage: 5 MILLIGRAM, DAILY
     Route: 048
     Dates: start: 202009, end: 202009
  6. LEPTICUR [Suspect]
     Active Substance: TROPATEPINE HYDROCHLORIDE
     Indication: PRODUCT USED FOR UNKNOWN INDICATION
     Dosage: 10 MILLIGRAM, DAILY
     Route: 048
     Dates: start: 2018
  7. TERCIAN [CYAMEMAZINE] [Suspect]
     Active Substance: CYAMEMAZINE
     Dosage: 25 MILLIGRAM, DAILY
     Route: 048
     Dates: start: 202009, end: 2020
  8. PAROXETINE ARROW [Suspect]
     Active Substance: PAROXETINE
     Dosage: 10 MILLIGRAM, DAILY
     Route: 048
     Dates: start: 20200907, end: 202009
  9. ZEBINIX [Suspect]
     Active Substance: ESLICARBAZEPINE ACETATE
     Indication: EPILEPSY
     Dosage: UNKNOWN
     Route: 048
     Dates: start: 2018
  10. EPITOMAX [Suspect]
     Active Substance: TOPIRAMATE
     Dosage: 100 MILLIGRAM, DAILY
     Dates: start: 2018
  11. PAROXETINE ARROW [Suspect]
     Active Substance: PAROXETINE
     Indication: PRODUCT USED FOR UNKNOWN INDICATION
     Dosage: 20 MILLIGRAM, DAILY
     Route: 048
     Dates: start: 2018, end: 20200907
  12. EVEROLIMUS. [Suspect]
     Active Substance: EVEROLIMUS
     Indication: TUBEROUS SCLEROSIS COMPLEX
     Dosage: 10 MILLIGRAM, DAILY
     Route: 048
     Dates: start: 2018
  13. TERCIAN [CYAMEMAZINE] [Suspect]
     Active Substance: CYAMEMAZINE
     Indication: SCHIZOPHRENIA
     Dosage: 50 MILLIGRAM, DAILY
     Route: 048
     Dates: start: 2018
  14. EPITOMAX [Suspect]
     Active Substance: TOPIRAMATE
     Indication: EPILEPSY
     Dosage: 200 MILLIGRAM, DAILY
     Route: 048
     Dates: start: 2018

REACTIONS (4)
  - Amenorrhoea [Recovering/Resolving]
  - Galactorrhoea [Recovering/Resolving]
  - Drug interaction [Unknown]
  - Hyperprolactinaemia [Recovering/Resolving]

NARRATIVE: CASE EVENT DATE: 202009
